FAERS Safety Report 16760441 (Version 1)
Quarter: 2019Q3

REPORT INFORMATION
  Report Type: Spontaneous
  Country: US (occurrence: US)
  Receive Date: 20190830
  Receipt Date: 20190830
  Transmission Date: 20191005
  Serious: Yes (Other)
  Sender: FDA-Public Use
  Company Number: PHHY2019US197711

PATIENT
  Age: 57 Year
  Sex: Male

DRUGS (2)
  1. TRIAMCINOLONE [Suspect]
     Active Substance: TRIAMCINOLONE
     Indication: DERMATITIS
     Dosage: UNK
     Route: 061
  2. CABOZANTINIB [Concomitant]
     Active Substance: CABOZANTINIB
     Indication: METASTATIC RENAL CELL CARCINOMA
     Dosage: 60 MG, QD
     Route: 065

REACTIONS (4)
  - Skin ulcer [Recovering/Resolving]
  - General physical health deterioration [Recovering/Resolving]
  - Odynophagia [Unknown]
  - Condition aggravated [Recovering/Resolving]
